FAERS Safety Report 6107464-6 (Version None)
Quarter: 2009Q1

REPORT INFORMATION
  Report Type: 
  Country: None (occurrence: None)
  Receive Date: 20090309
  Receipt Date: 20090223
  Transmission Date: 20090719
  Serious: Yes (Death)
  Sender: FDA-Public Use
  Company Number: GR-PFIZER INC-2009175416

PATIENT

DRUGS (2)
  1. CHAMPIX [Suspect]
     Indication: SMOKING CESSATION THERAPY
     Dosage: 1 MG, 2X/DAY
     Route: 048
     Dates: start: 20081201, end: 20090101
  2. ANTIHYPERTENSIVES [Concomitant]
     Dosage: UNK
     Route: 048
     Dates: start: 20081201

REACTIONS (1)
  - SUDDEN DEATH [None]
